FAERS Safety Report 5607909-1 (Version None)
Quarter: 2008Q1

REPORT INFORMATION
  Report Type: 
  Country: None (occurrence: None)
  Receive Date: 20080130
  Receipt Date: 20080123
  Transmission Date: 20080703
  Serious: Yes (Life-Threatening)
  Sender: FDA-Public Use
  Company Number: FR-AVENTIS-200810332FR

PATIENT
  Age: 86 Year
  Sex: Female

DRUGS (6)
  1. FLAGYL [Suspect]
     Indication: DIARRHOEA
     Route: 048
     Dates: start: 20071217, end: 20071219
  2. ERCEFURYL [Concomitant]
     Indication: ABDOMINAL PAIN
     Route: 048
     Dates: start: 20071217, end: 20071219
  3. ERCEFURYL [Concomitant]
     Indication: PYREXIA
     Route: 048
     Dates: start: 20071217, end: 20071219
  4. ACETAMINOPHEN [Concomitant]
     Indication: PAIN
     Route: 048
     Dates: start: 20071217, end: 20071219
  5. ACETAMINOPHEN [Concomitant]
     Indication: PYREXIA
     Route: 048
     Dates: start: 20071217, end: 20071219
  6. SMECTA                             /01255901/ [Concomitant]
     Indication: ABDOMINAL PAIN
     Route: 048
     Dates: start: 20071217, end: 20071219

REACTIONS (6)
  - AGRANULOCYTOSIS [None]
  - CARDIAC MURMUR [None]
  - CHRONIC LYMPHOCYTIC LEUKAEMIA [None]
  - PSEUDOMONAL SEPSIS [None]
  - SELF-MEDICATION [None]
  - SEPSIS [None]
